FAERS Safety Report 5914862-X (Version None)
Quarter: 2008Q4

REPORT INFORMATION
  Report Type: 
  Country: None (occurrence: None)
  Receive Date: 20081010
  Receipt Date: 20081003
  Transmission Date: 20090506
  Serious: Yes (Other)
  Sender: FDA-Public Use
  Company Number: PHHY2008FR21154

PATIENT
  Sex: Female
  Weight: 49 kg

DRUGS (5)
  1. ACLASTA [Suspect]
     Indication: OSTEOPOROSIS
     Dosage: 5 MG
     Route: 042
     Dates: start: 20080906
  2. SERETIDE [Concomitant]
     Indication: ASTHMA
     Dosage: 250 UG, BID
     Dates: start: 20040101
  3. SINGULAIR [Concomitant]
     Indication: ASTHMA
     Dosage: 10 MG, QD
     Route: 048
     Dates: start: 20040101
  4. EFFEXOR [Concomitant]
     Indication: DEPRESSION
     Dosage: 75 MG, QD
     Dates: start: 20040101
  5. CRESTOR [Concomitant]
     Indication: HYPERCHOLESTEROLAEMIA
     Dosage: 10 MG, QD
     Dates: start: 20060101

REACTIONS (9)
  - CHILLS [None]
  - FALL [None]
  - HEADACHE [None]
  - LOSS OF CONSCIOUSNESS [None]
  - MALAISE [None]
  - MUSCULOSKELETAL STIFFNESS [None]
  - NAUSEA [None]
  - PYREXIA [None]
  - TREMOR [None]
